FAERS Safety Report 8810044 (Version 1)
Quarter: 2012Q4

REPORT INFORMATION
  Report Type: 
  Country: US (occurrence: US)
  Receive Date: 20120926
  Receipt Date: 20120926
  Transmission Date: 20130627
  Serious: Yes (Disabling)
  Sender: FDA-Public Use
  Company Number: US-GLAXOSMITHKLINE-A0994514A

PATIENT
  Age: 44 Year
  Sex: Female

DRUGS (13)
  1. SORILUX [Suspect]
     Indication: PSORIASIS
     Route: 061
     Dates: start: 20120812
  2. VECTICAL [Concomitant]
  3. DESONIDE [Concomitant]
  4. TACLONEX [Concomitant]
  5. CLOBEX [Concomitant]
  6. CLOBEX [Concomitant]
  7. NORVASC [Concomitant]
  8. HYDROCHLOROTHIAZIDE [Concomitant]
  9. LISINOPRIL [Concomitant]
  10. B VITAMIN [Concomitant]
  11. VITAMIN D [Concomitant]
  12. DOCOSAHEXAENOIC ACID [Concomitant]
  13. MOTRIN [Concomitant]

REACTIONS (1)
  - Migraine [Not Recovered/Not Resolved]
